FAERS Safety Report 4641063-8 (Version None)
Quarter: 2005Q2

REPORT INFORMATION
  Report Type: 
  Country: None (occurrence: None)
  Receive Date: 20050421
  Receipt Date: 20050413
  Transmission Date: 20051028
  Serious: Yes (Hospitalization)
  Sender: FDA-Public Use
  Company Number: JP-JNJFOC-20041200607

PATIENT
  Sex: Female
  Weight: 43 kg

DRUGS (7)
  1. REMICADE [Suspect]
     Route: 042
  2. REMICADE [Suspect]
     Route: 042
  3. REMICADE [Suspect]
     Indication: RHEUMATOID ARTHRITIS
     Route: 042
  4. METHOTREXATE [Concomitant]
     Route: 049
  5. METHOTREXATE [Concomitant]
     Route: 049
  6. PREDNISOLONE [Concomitant]
     Route: 049
  7. FOLIAMIN [Concomitant]
     Route: 049

REACTIONS (2)
  - DIARRHOEA [None]
  - PULMONARY TUBERCULOSIS [None]
